FAERS Safety Report 13688787 (Version 1)
Quarter: 2017Q2

REPORT INFORMATION
  Report Type: Spontaneous
  Country: US (occurrence: US)
  Receive Date: 20170623
  Receipt Date: 20170623
  Transmission Date: 20170830
  Serious: Yes (Disabling)
  Sender: FDA-Public Use
  Company Number: None

PATIENT
  Age: 53 Year
  Sex: Female
  Weight: 110.2 kg

DRUGS (2)
  1. LORAZEPAM. [Suspect]
     Active Substance: LORAZEPAM
     Indication: ANXIETY
  2. TYLENOL [Concomitant]
     Active Substance: ACETAMINOPHEN

REACTIONS (10)
  - Skin burning sensation [None]
  - Anger [None]
  - Insomnia [None]
  - Balance disorder [None]
  - Depression [None]
  - Bladder spasm [None]
  - Drug withdrawal syndrome [None]
  - Eczema [None]
  - Hyperhidrosis [None]
  - Hot flush [None]

NARRATIVE: CASE EVENT DATE: 20140823
